FAERS Safety Report 22095290 (Version 16)
Quarter: 2024Q1

REPORT INFORMATION
  Report Type: Report from Study
  Country: US (occurrence: US)
  Receive Date: 20230314
  Receipt Date: 20240109
  Transmission Date: 20240410
  Serious: Yes (Life-Threatening, Hospitalization, Other)
  Sender: FDA-Public Use
  Company Number: US-JAZZ PHARMACEUTICALS-2023-US-004086

PATIENT
  Age: 47 Year
  Sex: Female

DRUGS (18)
  1. XYWAV [Suspect]
     Active Substance: CALCIUM OXYBATE\MAGNESIUM OXYBATE\POTASSIUM OXYBATE\SODIUM OXYBATE
     Indication: Narcolepsy
     Dosage: 4.5 GRAM, BID
     Route: 048
  2. XYWAV [Suspect]
     Active Substance: CALCIUM OXYBATE\MAGNESIUM OXYBATE\POTASSIUM OXYBATE\SODIUM OXYBATE
     Dosage: UNK
  3. XYWAV [Suspect]
     Active Substance: CALCIUM OXYBATE\MAGNESIUM OXYBATE\POTASSIUM OXYBATE\SODIUM OXYBATE
     Dosage: UNK
  4. CETIRIZINE HCL [Concomitant]
     Active Substance: CETIRIZINE HYDROCHLORIDE
     Indication: Product used for unknown indication
     Dosage: UNK
     Dates: start: 20120820
  5. VITAMIN D3 [Concomitant]
     Active Substance: CHOLECALCIFEROL
     Indication: Product used for unknown indication
     Dosage: SOFTGEL
     Dates: start: 20000820
  6. FISH OIL [Concomitant]
     Active Substance: FISH OIL
     Indication: Product used for unknown indication
     Dosage: UNK
     Dates: start: 20000820
  7. ALBUTEROL SULFATE [Concomitant]
     Active Substance: ALBUTEROL SULFATE
     Indication: Product used for unknown indication
     Dosage: UNK
     Dates: start: 20130820
  8. ADDERALL [Concomitant]
     Active Substance: AMPHETAMINE ASPARTATE\AMPHETAMINE SULFATE\DEXTROAMPHETAMINE SACCHARATE\DEXTROAMPHETAMINE SULFATE
     Indication: Product used for unknown indication
     Dosage: 20 MG CAPSULE
     Dates: start: 20150911
  9. ADDERALL [Concomitant]
     Active Substance: AMPHETAMINE ASPARTATE\AMPHETAMINE SULFATE\DEXTROAMPHETAMINE SACCHARATE\DEXTROAMPHETAMINE SULFATE
     Dosage: 10 MG TABLET
     Dates: start: 20150911
  10. KETOROLAC [Concomitant]
     Active Substance: KETOROLAC TROMETHAMINE
     Indication: Product used for unknown indication
     Dosage: UNK
     Dates: start: 20230221
  11. GEMTESA [Concomitant]
     Active Substance: VIBEGRON
     Indication: Product used for unknown indication
     Dosage: UNK
     Dates: start: 20230303
  12. GEMTESA [Concomitant]
     Active Substance: VIBEGRON
     Indication: Bladder spasm
  13. GEMTESA [Concomitant]
     Active Substance: VIBEGRON
     Indication: Pain
  14. DILTIAZEM [Concomitant]
     Active Substance: DILTIAZEM
     Indication: Product used for unknown indication
     Dosage: UNK
     Dates: start: 20230318
  15. CLARITHROMYCIN [Concomitant]
     Active Substance: CLARITHROMYCIN
     Indication: Product used for unknown indication
     Dosage: UNK
     Dates: start: 20230417
  16. TELMISARTAN [Concomitant]
     Active Substance: TELMISARTAN
     Indication: Product used for unknown indication
     Dosage: UNK
     Dates: start: 20230725
  17. SUNOSI [Concomitant]
     Active Substance: SOLRIAMFETOL
     Indication: Product used for unknown indication
     Dosage: UNK
     Dates: start: 20231012
  18. TUMS EX [Concomitant]
     Active Substance: CALCIUM CARBONATE
     Indication: Product used for unknown indication
     Dosage: UNK
     Dates: start: 20231222

REACTIONS (21)
  - Nephrolithiasis [Recovering/Resolving]
  - Sepsis [Unknown]
  - Myocardial infarction [Unknown]
  - Respiratory failure [Unknown]
  - Acute kidney injury [Unknown]
  - Parathyroid tumour benign [Recovered/Resolved]
  - Septic shock [Unknown]
  - Central sleep apnoea syndrome [Unknown]
  - Oropharyngeal pain [Unknown]
  - Dysphonia [Unknown]
  - Blood pressure fluctuation [Unknown]
  - Malaise [Unknown]
  - Urinary tract infection [Unknown]
  - Chest discomfort [Recovered/Resolved]
  - Memory impairment [Unknown]
  - Movement disorder [Unknown]
  - Hypersomnia [Unknown]
  - Vitamin D decreased [Unknown]
  - Hypercalcaemia [Recovered/Resolved]
  - Bronchitis [Unknown]
  - Product administration interrupted [Unknown]

NARRATIVE: CASE EVENT DATE: 20230219
